FAERS Safety Report 14404920 (Version 17)
Quarter: 2018Q2

REPORT INFORMATION
  Report Type: Report from Study
  Country: None (occurrence: CH)
  Receive Date: 20180118
  Receipt Date: 20180420
  Transmission Date: 20180711
  Serious: Yes (Hospitalization, Other)
  Sender: FDA-Public Use
  Company Number: CH-ABBVIE-18K-151-2226576-00

PATIENT
  Age: 54 Year
  Sex: Female

DRUGS (37)
  1. DUODOPA [Suspect]
     Active Substance: CARBIDOPA\LEVODOPA
     Dosage: 24H THERAPY; MD:5.5ML; CD DAY:3.4ML/H; CD NIGHT: 1.8 ML/H; ED:1.9ML
     Route: 050
     Dates: end: 20180207
  2. SIRDALUD [Concomitant]
     Active Substance: TIZANIDINE
     Indication: PRODUCT USED FOR UNKNOWN INDICATION
     Dosage: AT NIGHT TIME
  3. REDORMIN [Concomitant]
     Indication: PRODUCT USED FOR UNKNOWN INDICATION
     Dosage: AT NIGHT TIME
  4. DUODOPA [Suspect]
     Active Substance: CARBIDOPA\LEVODOPA
     Indication: PARKINSON^S DISEASE
     Dosage: MD:5.5ML; CD DAY:3.7ML/H; CD NIGHT:: 2.1ML/H; ED:1.8ML
     Route: 050
     Dates: start: 20170321, end: 2017
  5. DUODOPA [Suspect]
     Active Substance: CARBIDOPA\LEVODOPA
     Dosage: MD: 5.5ML, CD DAY: 3.6ML/H, CD NIGHT: 1.9 ML/H AND ED: 1.4ML
     Route: 050
     Dates: start: 2018, end: 2018
  6. BECOZYM FORTE [Concomitant]
     Indication: PRODUCT USED FOR UNKNOWN INDICATION
     Dosage: AT LUNCH TIME
  7. BETAHISTIN [Concomitant]
     Indication: PRODUCT USED FOR UNKNOWN INDICATION
     Dosage: IN THE MORNING, LUNCH TIME, EVENING
  8. DUODOPA [Suspect]
     Active Substance: CARBIDOPA\LEVODOPA
     Dosage: MD: 5.5ML; CD DAY: 3.6ML/H; CD NIGHT: 1.8 ML/H; ED: 1.2ML
     Route: 050
     Dates: start: 20180208, end: 20180208
  9. NOVALGIN (METAMIZOLE SODIUM) [Concomitant]
     Active Substance: METAMIZOLE SODIUM
     Indication: PRODUCT USED FOR UNKNOWN INDICATION
     Dosage: MORNING, MID DAY, EVENING, AT NIGHT
     Route: 048
  10. TEMESTA EXPIDET [Concomitant]
     Active Substance: LORAZEPAM
  11. DUODOPA [Suspect]
     Active Substance: CARBIDOPA\LEVODOPA
     Dosage: MD: 5.5ML; CD DAY: 3.6ML/H; CD NIGHT: 1.8 ML/H; EXTRA DOSE: 1.5ML
     Route: 050
     Dates: start: 20180207, end: 20180208
  12. DUODOPA [Suspect]
     Active Substance: CARBIDOPA\LEVODOPA
     Dosage: MD: 5.5ML, CD DAY: 3.4ML/H, C DO NIGHT: 1.8 ML/H ED: 1.2ML
     Route: 050
     Dates: start: 2018, end: 2018
  13. DUODOPA [Suspect]
     Active Substance: CARBIDOPA\LEVODOPA
     Dosage: MD: 3.0ML,?CR DAY: 3.4ML/H,?CR NIGHT: 2.2 ML/H FOR 9 HOURS?24H THERAPY?ED: 1.4ML
     Route: 050
     Dates: start: 201804
  14. PANTOPRAZOL [Concomitant]
     Active Substance: PANTOPRAZOLE SODIUM
     Indication: PRODUCT USED FOR UNKNOWN INDICATION
     Dosage: IN THE MORNINGS
  15. MAGNESIUM DIASPORAL [Concomitant]
     Active Substance: MAGNESIUM
     Indication: PRODUCT USED FOR UNKNOWN INDICATION
     Dosage: IN THE MORNING AND EVENING
  16. TEMESTA EXPIDET [Concomitant]
     Active Substance: LORAZEPAM
     Indication: PRODUCT USED FOR UNKNOWN INDICATION
     Dosage: 0.5 IN THE MORNING?1 AT LUNCH TIME?0.5 IN THE EVENING
  17. CYMBALTA [Concomitant]
     Active Substance: DULOXETINE HYDROCHLORIDE
     Indication: PRODUCT USED FOR UNKNOWN INDICATION
     Dosage: IN THE MORNING
  18. TRAMADOL. [Concomitant]
     Active Substance: TRAMADOL
     Indication: PRODUCT USED FOR UNKNOWN INDICATION
     Dosage: IN THE MORNING AND EVENING
     Route: 048
  19. DAFALGAN [Concomitant]
     Active Substance: ACETAMINOPHEN
     Indication: PRODUCT USED FOR UNKNOWN INDICATION
     Dosage: MORNING, MID DAY, EVENING, AT NIGHT
  20. AKINETON [Concomitant]
     Active Substance: BIPERIDEN HYDROCHLORIDE
     Indication: PRODUCT USED FOR UNKNOWN INDICATION
     Dosage: AT LUNCH TIME, AT NIGHT TIME
  21. SEQUASE [Concomitant]
     Active Substance: QUETIAPINE FUMARATE
     Indication: PRODUCT USED FOR UNKNOWN INDICATION
     Dosage: IN THE EVENING
  22. MADOPAR LIQ [Concomitant]
     Indication: PRODUCT USED FOR UNKNOWN INDICATION
     Dosage: REGULARLY
  23. DUODOPA [Suspect]
     Active Substance: CARBIDOPA\LEVODOPA
     Dosage: MD: 5.5ML, CD DAY: 3.6ML/H,CD NIGHT: 1.9 ML/H, ED: 1.4ML ED: 1.4ML
     Route: 050
     Dates: start: 201803, end: 201803
  24. MADOPAR DR [Concomitant]
     Indication: PRODUCT USED FOR UNKNOWN INDICATION
     Dosage: AT NIGHT TIME
  25. COMTESS [Concomitant]
     Active Substance: ENTACAPONE
     Indication: PRODUCT USED FOR UNKNOWN INDICATION
     Dosage: 0.5 TABLET AT 6AM, 9.30AM, 12.30AM, 4.30PM A TABLET AT 10PM
  26. DUODOPA [Suspect]
     Active Substance: CARBIDOPA\LEVODOPA
     Dosage: MD: 5.5ML; CD DAY: 3.6ML/H; CD NIGHT: 1.8 ML/H; ED: 1.2ML?1 CASSETTE PER 24H
     Route: 050
     Dates: start: 20180208, end: 2018
  27. DUODOPA [Suspect]
     Active Substance: CARBIDOPA\LEVODOPA
     Dosage: MD: 5.5ML,CD DAY: 3.5ML/H,CD NIGHT: 1.9 ML/H, ED: 1.4ML
     Route: 050
     Dates: start: 201803, end: 201803
  28. DUODOPA [Suspect]
     Active Substance: CARBIDOPA\LEVODOPA
     Dosage: MD: 5.5 ML, CD DAY: 3.5 ML/H,CD NIGHT: 1.9 ML/H, ED: 1.4 ML
     Route: 050
     Dates: start: 201803, end: 201803
  29. DUODOPA [Suspect]
     Active Substance: CARBIDOPA\LEVODOPA
     Dosage: MD: 5.0 ML, CD DAY: 3.5 ML/H, CD NIGHT: 2.2 ML/H, ED: 1.4 ML
     Route: 050
     Dates: start: 201803, end: 20180311
  30. LYRICA [Concomitant]
     Active Substance: PREGABALIN
     Indication: PRODUCT USED FOR UNKNOWN INDICATION
     Dosage: 1.5 IN THE MORNING?1 AT LUNCH TIME?1.5 IN THE EVENING?1 AT NIGHT TIME
  31. STILNOX [Concomitant]
     Active Substance: ZOLPIDEM TARTRATE
     Indication: PRODUCT USED FOR UNKNOWN INDICATION
     Dosage: AT NIGHT TIME
  32. SURMONTIL [Concomitant]
     Active Substance: TRIMIPRAMINE MALEATE
     Indication: PRODUCT USED FOR UNKNOWN INDICATION
     Dosage: AT NIGHT TIME
  33. TEBOKAN [Concomitant]
     Active Substance: GINKGO
     Indication: PRODUCT USED FOR UNKNOWN INDICATION
     Dosage: IN THE MORNING
  34. DUODOPA [Suspect]
     Active Substance: CARBIDOPA\LEVODOPA
     Dosage: MD: 5.5ML, CD DAY: 3.4ML/H, CD NIGHT: 1.9 ML/H TILL 12 PM, ED: 1.4ML
     Route: 050
     Dates: start: 20180306, end: 20180306
  35. DUODOPA [Suspect]
     Active Substance: CARBIDOPA\LEVODOPA
     Dosage: MD: 4.0 ML, CD DAY: 3.4 ML/H, CD NIGHT: 2.2 ML/H, ED: 1.4 ML
     Route: 050
     Dates: start: 20180311, end: 20180320
  36. DUODOPA [Suspect]
     Active Substance: CARBIDOPA\LEVODOPA
     Dosage: MORNING DOSE: 3.0ML,?CD DAY: 3.4ML/H,?CD NIGHT: 2.2 ML/H FOR 8 HRS?EXTRA DOSE: 1.4ML
     Route: 050
     Dates: start: 20180320, end: 201804
  37. ACIDUM FOLICUM [Concomitant]
     Active Substance: FOLIC ACID
     Indication: PRODUCT USED FOR UNKNOWN INDICATION
     Dosage: AT LUNCH TIME

REACTIONS (24)
  - Dissociative identity disorder [Unknown]
  - Dyskinesia [Recovering/Resolving]
  - Feeling abnormal [Unknown]
  - Palpitations [Recovered/Resolved]
  - Tremor [Not Recovered/Not Resolved]
  - Insomnia [Unknown]
  - Dyspnoea [Recovered/Resolved]
  - Fall [Recovered/Resolved]
  - Stress [Unknown]
  - Drug effect decreased [Unknown]
  - Psychogenic tremor [Unknown]
  - Emotional disorder [Unknown]
  - Muscle rigidity [Unknown]
  - Anger [Unknown]
  - Freezing phenomenon [Unknown]
  - Discomfort [Unknown]
  - Musculoskeletal stiffness [Unknown]
  - Urinary tract infection [Unknown]
  - Drug abuse [Unknown]
  - Panic attack [Unknown]
  - Psychiatric decompensation [Unknown]
  - Suicidal ideation [Unknown]
  - Depression [Unknown]
  - Aggression [Recovered/Resolved]

NARRATIVE: CASE EVENT DATE: 20180120
